FAERS Safety Report 18703785 (Version 3)
Quarter: 2021Q2

REPORT INFORMATION
  Report Type: Report from Study
  Country: US (occurrence: US)
  Receive Date: 20210106
  Receipt Date: 20210412
  Transmission Date: 20210717
  Serious: No
  Sender: FDA-Public Use
  Company Number: NVSC2021US001092

PATIENT
  Sex: Female

DRUGS (1)
  1. MAYZENT [Suspect]
     Active Substance: SIPONIMOD
     Indication: MULTIPLE SCLEROSIS
     Dosage: 1 MG, QD
     Route: 048
     Dates: start: 20201010

REACTIONS (5)
  - Alopecia [Unknown]
  - SARS-CoV-2 test positive [Unknown]
  - Disturbance in attention [Unknown]
  - Memory impairment [Unknown]
  - Speech disorder [Unknown]
